FAERS Safety Report 9105974 (Version 3)
Quarter: 2013Q1

REPORT INFORMATION
  Report Type: Spontaneous
  Country: US (occurrence: US)
  Receive Date: 20130220
  Receipt Date: 20130326
  Transmission Date: 20140127
  Serious: Yes (Death)
  Sender: FDA-Public Use
  Company Number: US-GILEAD-2013-0070136

PATIENT
  Age: 74 Year
  Sex: Female

DRUGS (1)
  1. LETAIRIS [Suspect]
     Indication: SCLERODERMA
     Dates: start: 20110329

REACTIONS (1)
  - Unevaluable event [Fatal]
